FAERS Safety Report 24056050 (Version 2)
Quarter: 2024Q3

REPORT INFORMATION
  Report Type: Spontaneous
  Country: GB (occurrence: GB)
  Receive Date: 20240705
  Receipt Date: 20240710
  Transmission Date: 20241017
  Serious: Yes (Death, Other)
  Sender: TORRENT
  Company Number: None

PATIENT
  Age: 93 Year
  Sex: Male

DRUGS (3)
  1. LOSARTAN [Suspect]
     Active Substance: LOSARTAN
     Indication: Hypertension
     Dosage: STRENGTH: 100MG
     Route: 065
  2. LAMOTRIGINE [Suspect]
     Active Substance: LAMOTRIGINE
     Indication: Hypertension
     Dosage: STRENGTH: 100MG
     Route: 065
     Dates: start: 20231003
  3. APIXABAN [Concomitant]
     Active Substance: APIXABAN
     Indication: Product used for unknown indication
     Dosage: UNKNOWN
     Route: 065

REACTIONS (10)
  - Death [Fatal]
  - Gastrointestinal haemorrhage [Unknown]
  - Loss of consciousness [Unknown]
  - Swelling face [Unknown]
  - Dyspnoea [Unknown]
  - Hypotension [Unknown]
  - Product dispensing error [Unknown]
  - Peripheral swelling [Unknown]
  - Swelling [Unknown]
  - Livedo reticularis [Unknown]

NARRATIVE: CASE EVENT DATE: 20231003
